FAERS Safety Report 10573228 (Version 1)
Quarter: 2014Q4

REPORT INFORMATION
  Report Type: Spontaneous
  Country: FR (occurrence: FR)
  Receive Date: 20141110
  Receipt Date: 20141110
  Transmission Date: 20150529
  Serious: Yes (Other)
  Sender: FDA-Public Use
  Company Number: FR-BAYER-2014-165129

PATIENT
  Age: 67 Year
  Sex: Male

DRUGS (1)
  1. BETAFERON [Suspect]
     Active Substance: INTERFERON BETA-1B
     Indication: MULTIPLE SCLEROSIS
     Dosage: UNK
     Dates: start: 2007

REACTIONS (3)
  - Injection site erythema [Recovered/Resolved]
  - Injection site plaque [Recovered/Resolved]
  - Injection site necrosis [Recovered/Resolved]

NARRATIVE: CASE EVENT DATE: 201410
